FAERS Safety Report 9993667 (Version 1)
Quarter: 2014Q1

REPORT INFORMATION
  Report Type: Spontaneous
  Country: TW (occurrence: TW)
  Receive Date: 20140310
  Receipt Date: 20140310
  Transmission Date: 20141002
  Serious: Yes (Other)
  Sender: FDA-Public Use
  Company Number: TW-WATSON-2014-04043

PATIENT
  Age: 26 Year
  Sex: Male
  Weight: 75 kg

DRUGS (4)
  1. FENTANYL (UNKNOWN) [Suspect]
     Indication: SEDATION
     Dosage: 100 ?G,SINGLE
     Route: 042
     Dates: start: 20061006
  2. LIDOCAINE [Concomitant]
     Indication: EPIDURAL ANAESTHESIA
     Dosage: 1200 MG, UNKNOWN
     Route: 008
     Dates: start: 20061006
  3. PROPOFOL [Concomitant]
     Indication: EPIDURAL ANAESTHESIA
     Dosage: 200 MG, UNKNOWN
     Route: 008
     Dates: start: 20061006
  4. CEPHAZOLIN [Concomitant]
     Indication: ANTIBIOTIC PROPHYLAXIS
     Dosage: 1 G, UNKNOWN
     Route: 065
     Dates: start: 20061006

REACTIONS (1)
  - Dyskinesia [Recovered/Resolved]
